FAERS Safety Report 8238985-8 (Version None)
Quarter: 2012Q1

REPORT INFORMATION
  Report Type: 
  Country: None (occurrence: None)
  Receive Date: 20120327
  Receipt Date: 20120320
  Transmission Date: 20120608
  Serious: Yes (Hospitalization, Other)
  Sender: FDA-Public Use
  Company Number: PHHY2012BR025711

PATIENT
  Sex: Female
  Weight: 55 kg

DRUGS (1)
  1. EXFORGE [Suspect]
     Indication: HYPERTENSION
     Dosage: 1 DF, QD (160 MG VALS AND 5 MG AMLO)
     Route: 048

REACTIONS (2)
  - DYSPHONIA [None]
  - THYROID NEOPLASM [None]
